FAERS Safety Report 19462310 (Version 1)
Quarter: 2021Q2

REPORT INFORMATION
  Report Type: Spontaneous
  Country: US (occurrence: US)
  Receive Date: 20210625
  Receipt Date: 20210625
  Transmission Date: 20210717
  Serious: Yes (Other)
  Sender: FDA-Public Use
  Company Number: US-AMGEN-USASP2021093533

PATIENT
  Sex: Female

DRUGS (1)
  1. PROLIA [Suspect]
     Active Substance: DENOSUMAB
     Indication: OSTEOPOROSIS POSTMENOPAUSAL
     Dosage: 60 MILLIGRAM
     Route: 065

REACTIONS (6)
  - Spinal fracture [Unknown]
  - Intentional product misuse [Unknown]
  - Hiatus hernia [Unknown]
  - Bone density decreased [Unknown]
  - Cystitis [Unknown]
  - Urinary tract infection [Unknown]
